FAERS Safety Report 15002749 (Version 1)
Quarter: 2018Q2

REPORT INFORMATION
  Report Type: Spontaneous
  Country: US (occurrence: US)
  Receive Date: 20180612
  Receipt Date: 20180612
  Transmission Date: 20180711
  Serious: No
  Sender: FDA-Public Use
  Company Number: US-009507513-1806USA003201

PATIENT
  Age: 61 Year
  Sex: Female

DRUGS (1)
  1. ASMANEX [Suspect]
     Active Substance: MOMETASONE FUROATE
     Indication: RESPIRATORY THERAPY
     Dosage: 1 PUFF ORALLY EVERY MORNING
     Route: 048

REACTIONS (3)
  - Product quality issue [Recovered/Resolved]
  - Adverse event [Recovered/Resolved]
  - Drug dose omission [Recovered/Resolved]

NARRATIVE: CASE EVENT DATE: 20180306
